FAERS Safety Report 4330785-4 (Version None)
Quarter: 2004Q2

REPORT INFORMATION
  Report Type: 
  Country: None (occurrence: None)
  Receive Date: 20040401
  Receipt Date: 20040401
  Transmission Date: 20050107
  Serious: Yes (Hospitalization)
  Sender: FDA-Public Use
  Company Number: None

PATIENT
  Sex: Male
  Weight: 85.1 kg

DRUGS (5)
  1. GLEEVEC [Suspect]
     Indication: ANAPLASTIC ASTROCYTOMA
     Dosage: 500 MG PO BID
     Route: 048
     Dates: start: 20040324
  2. HYDROXYUREA [Suspect]
     Indication: ANAPLASTIC ASTROCYTOMA
     Dosage: 500 MG PO BID
     Route: 048
     Dates: start: 20040324
  3. NEURONTIN [Concomitant]
  4. KEPPRA [Concomitant]
  5. TRILEPTAL [Concomitant]

REACTIONS (1)
  - PNEUMONIA [None]
